FAERS Safety Report 20878842 (Version 1)
Quarter: 2022Q2

REPORT INFORMATION
  Report Type: Spontaneous
  Country: US (occurrence: US)
  Receive Date: 20220526
  Receipt Date: 20220526
  Transmission Date: 20220721
  Serious: No
  Sender: FDA-Public Use
  Company Number: US-PFIZER INC-202200757264

PATIENT
  Age: 10 Year
  Sex: Male
  Weight: 29.21 kg

DRUGS (3)
  1. PREVACID [Suspect]
     Active Substance: LANSOPRAZOLE
     Indication: Gastrooesophageal reflux disease
     Dosage: 15 MILLIGRAM, BID
     Route: 065
  2. ABILIFY [Concomitant]
     Active Substance: ARIPIPRAZOLE
     Indication: Behaviour disorder
     Dosage: 5 MILLIGRAM, QD
  3. CYPROHEPTADINE HYDROCHLORIDE [Concomitant]
     Active Substance: CYPROHEPTADINE HYDROCHLORIDE
     Indication: Cyclic vomiting syndrome
     Dosage: 3.6 MILLIGRAM, BID (LIQUID FORM; 9MLS OR 3.6MG TWICE A DAY)

REACTIONS (1)
  - Product use issue [Unknown]
